FAERS Safety Report 8155054-6 (Version None)
Quarter: 2012Q1

REPORT INFORMATION
  Report Type: 
  Country: None (occurrence: None)
  Receive Date: 20120221
  Receipt Date: 20120215
  Transmission Date: 20120608
  Serious: Yes (Death)
  Sender: FDA-Public Use
  Company Number: US-PFIZER INC-K201100291

PATIENT
  Age: 22 Year
  Sex: Male

DRUGS (5)
  1. OXYCODONE HCL [Suspect]
     Dosage: UNK
  2. COCAINE [Suspect]
     Dosage: UNK
  3. DIPHENHYDRAMINE HCL [Suspect]
     Dosage: UNK
  4. AVINZA [Suspect]
     Dosage: UNK
  5. CODEINE [Suspect]
     Dosage: UNK

REACTIONS (1)
  - MULTIPLE DRUG OVERDOSE [None]
